FAERS Safety Report 7110667-5 (Version None)
Quarter: 2010Q4

REPORT INFORMATION
  Report Type: 
  Country: None (occurrence: None)
  Receive Date: 20101118
  Receipt Date: 20101112
  Transmission Date: 20110411
  Serious: Yes (Death, Hospitalization)
  Sender: FDA-Public Use
  Company Number: A0734633A

PATIENT
  Age: 57 Year
  Sex: Female
  Weight: 137.3 kg

DRUGS (2)
  1. AVANDIA [Suspect]
     Route: 048
     Dates: start: 19990101, end: 20060619
  2. HUMULIN INSULIN [Concomitant]
     Dates: start: 19990101, end: 20060601

REACTIONS (3)
  - CARDIAC FAILURE CONGESTIVE [None]
  - MYOCARDIAL INFARCTION [None]
  - PAIN [None]
